FAERS Safety Report 19824575 (Version 1)
Quarter: 2021Q3

REPORT INFORMATION
  Report Type: Spontaneous
  Country: US (occurrence: US)
  Receive Date: 20210913
  Receipt Date: 20210913
  Transmission Date: 20211014
  Serious: Yes (Hospitalization)
  Sender: FDA-Public Use
  Company Number: None

PATIENT
  Age: 68 Year
  Sex: Female
  Weight: 114.75 kg

DRUGS (15)
  1. BUPROPION XL [Concomitant]
     Active Substance: BUPROPION
     Dates: start: 20071226
  2. MYOCOPHENOLATE MOFETIL [Concomitant]
     Dates: start: 20071228
  3. PANTOPRAZOLE SODIUM. [Concomitant]
     Active Substance: PANTOPRAZOLE SODIUM
     Dates: start: 20160901
  4. FLUTICASONE NASAL SPRAY [Concomitant]
     Active Substance: FLUTICASONE
     Dates: start: 20130125
  5. OXCARBAZEPINE. [Concomitant]
     Active Substance: OXCARBAZEPINE
     Dates: start: 20210406
  6. MONTELUKAST [Concomitant]
     Active Substance: MONTELUKAST SODIUM
     Dates: start: 20071024
  7. REGEN?COV [Suspect]
     Active Substance: CASIRIVIMAB\IMDEVIMAB
     Indication: COVID-19
     Dosage: ?          OTHER FREQUENCY:ONCE;?
     Route: 041
     Dates: start: 20210907, end: 20210907
  8. GABAPENTIN. [Concomitant]
     Active Substance: GABAPENTIN
     Dates: start: 20081020
  9. BUDESONIDE. [Concomitant]
     Active Substance: BUDESONIDE
     Dates: start: 20070124
  10. CLONAZEPAM. [Concomitant]
     Active Substance: CLONAZEPAM
     Dates: start: 20080305
  11. FORMOTEROL FUMARATE NEBU [Concomitant]
     Dates: start: 20091202
  12. LOSARTAN. [Concomitant]
     Active Substance: LOSARTAN
     Dates: start: 20181224
  13. MIRTAZAPINE. [Concomitant]
     Active Substance: MIRTAZAPINE
     Dates: start: 20190128
  14. DULAGLUTIDE INJECTOR [Concomitant]
     Dates: start: 20200911
  15. METFORMIN ER [Concomitant]
     Active Substance: METFORMIN HYDROCHLORIDE
     Dates: start: 20201124

REACTIONS (16)
  - COVID-19 pneumonia [None]
  - Cystitis [None]
  - Electrocardiogram QT prolonged [None]
  - Pyrexia [None]
  - Pollakiuria [None]
  - Chills [None]
  - Dyspnoea [None]
  - Bacterial infection [None]
  - Electrocardiogram PR shortened [None]
  - Nausea [None]
  - Cough [None]
  - Headache [None]
  - Anaemia [None]
  - Blood lactic acid increased [None]
  - Sinus tachycardia [None]
  - Dysuria [None]

NARRATIVE: CASE EVENT DATE: 20210907
